FAERS Safety Report 5012398-4 (Version None)
Quarter: 2006Q2

REPORT INFORMATION
  Report Type: 
  Country: None (occurrence: None)
  Receive Date: 20060414
  Receipt Date: 20060116
  Transmission Date: 20061013
  Serious: No
  Sender: FDA-Public Use
  Company Number: 2006SP000297

PATIENT
  Age: 47 Year
  Sex: Female
  Weight: 88.4514 kg

DRUGS (11)
  1. LUNESTA [Suspect]
     Indication: INSOMNIA
     Dosage: 3 MG;PRN;ORAL
     Route: 048
     Dates: start: 20051101
  2. DURAGESIC-100 [Concomitant]
  3. SYNTHROID [Concomitant]
  4. ZANTAC [Concomitant]
  5. PREVACID [Concomitant]
  6. CARAFATE [Concomitant]
  7. BENTYL [Concomitant]
  8. LIDOCAINE [Concomitant]
  9. PROZAC [Concomitant]
  10. WELLBUTRIN [Concomitant]
  11. XANAX [Concomitant]

REACTIONS (3)
  - DRUG INEFFECTIVE [None]
  - DYSGEUSIA [None]
  - INSOMNIA [None]
